FAERS Safety Report 6853162-0 (Version None)
Quarter: 2010Q3

REPORT INFORMATION
  Report Type: 
  Country: None (occurrence: None)
  Receive Date: 20100717
  Receipt Date: 20071201
  Transmission Date: 20110219
  Serious: No
  Sender: FDA-Public Use
  Company Number: US-PFIZER INC-2007103022

PATIENT
  Sex: Female

DRUGS (10)
  1. CHANTIX [Suspect]
     Indication: SMOKING CESSATION THERAPY
     Dates: start: 20071101
  2. RANEXA [Concomitant]
     Indication: CARDIAC DISORDER
  3. SYNTHROID [Concomitant]
  4. IMDUR [Concomitant]
  5. THIAZIDES [Concomitant]
  6. INDERAL LA [Concomitant]
  7. DARVOCET [Concomitant]
     Indication: ARTHRITIS
  8. CLORAZEPATE DIPOTASSIUM [Concomitant]
  9. VYTORIN [Concomitant]
     Indication: BLOOD CHOLESTEROL ABNORMAL
  10. ALL OTHER THERAPEUTIC PRODUCTS [Concomitant]

REACTIONS (4)
  - ABDOMINAL DISCOMFORT [None]
  - ERUCTATION [None]
  - NAUSEA [None]
  - VOMITING [None]
